FAERS Safety Report 13694590 (Version 2)
Quarter: 2017Q3

REPORT INFORMATION
  Report Type: Spontaneous
  Country: US (occurrence: US)
  Receive Date: 20170627
  Receipt Date: 20170721
  Transmission Date: 20171127
  Serious: Yes (Hospitalization)
  Sender: FDA-Public Use
  Company Number: US-PFIZER INC-2017271828

PATIENT
  Age: 64 Year
  Sex: Male

DRUGS (2)
  1. SODIUM BICARBONATE. [Suspect]
     Active Substance: SODIUM BICARBONATE
     Dosage: UNK
  2. POTASSIUM PHOSPHATE DIBASIC/POTASSIUM PHOSPHATE MONOBASIC [Suspect]
     Active Substance: POTASSIUM PHOSPHATE, DIBASIC\POTASSIUM PHOSPHATE, MONOBASIC
     Indication: PARENTERAL NUTRITION
     Dosage: UNK (20.01 MM)
     Dates: start: 20170614

REACTIONS (4)
  - Product quality issue [Unknown]
  - Product use issue [Unknown]
  - Pyrexia [Not Recovered/Not Resolved]
  - Chills [Not Recovered/Not Resolved]

NARRATIVE: CASE EVENT DATE: 20170614
